FAERS Safety Report 18323507 (Version 1)
Quarter: 2020Q3

REPORT INFORMATION
  Report Type: Spontaneous
  Country: CN (occurrence: CN)
  Receive Date: 20200928
  Receipt Date: 20200928
  Transmission Date: 20201103
  Serious: Yes (Other)
  Sender: FDA-Public Use
  Company Number: CN-BEH-2020122878

PATIENT
  Age: 34 Year
  Sex: Male
  Weight: 70 kg

DRUGS (1)
  1. ALBURX [Suspect]
     Active Substance: ALBUMIN HUMAN
     Indication: HYPOPROTEINAEMIA
     Dosage: 10 GRAM, QD
     Route: 041
     Dates: start: 20200910, end: 20200912

REACTIONS (5)
  - Pyrexia [Recovering/Resolving]
  - Chills [Recovering/Resolving]
  - Blood pressure decreased [Unknown]
  - Heart rate increased [Unknown]
  - Respiratory rate decreased [Unknown]

NARRATIVE: CASE EVENT DATE: 20200912
